FAERS Safety Report 22773447 (Version 3)
Quarter: 2023Q4

REPORT INFORMATION
  Report Type: Spontaneous
  Country: US (occurrence: US)
  Receive Date: 20230801
  Receipt Date: 20231208
  Transmission Date: 20240110
  Serious: No
  Sender: FDA-Public Use
  Company Number: US-PFIZER INC-PV202300131014

PATIENT
  Age: 90 Year
  Sex: Female
  Weight: 45.7 kg

DRUGS (2)
  1. IBRANCE [Suspect]
     Active Substance: PALBOCICLIB
     Indication: Invasive ductal breast carcinoma
     Dosage: 75 MG, CYCLIC (TAKE 1 TABLET DAILY ON DAYS 1-21 OF A 28-DAY CYCLE)
     Route: 048
  2. IBRANCE [Suspect]
     Active Substance: PALBOCICLIB
     Indication: Benign lymph node neoplasm

REACTIONS (3)
  - Malaise [Unknown]
  - Laboratory test abnormal [Unknown]
  - Full blood count abnormal [Unknown]
